FAERS Safety Report 6731696-7 (Version None)
Quarter: 2010Q2

REPORT INFORMATION
  Report Type: 
  Country: None (occurrence: None)
  Receive Date: 20100518
  Receipt Date: 20100518
  Transmission Date: 20101027
  Serious: Yes (Hospitalization)
  Sender: FDA-Public Use
  Company Number: None

PATIENT
  Sex: Female
  Weight: 67.13 kg

DRUGS (21)
  1. GABAPENTIN 300MG CAPSULE ACTAVIS [Suspect]
     Indication: HYPERTONIC BLADDER
     Dosage: 2 CAPS Q6H PO
     Route: 048
     Dates: start: 20100412, end: 20100513
  2. BACLOFEN [Concomitant]
  3. BISACODYL [Concomitant]
  4. PERIDEX [Concomitant]
  5. FLEXERIL [Concomitant]
  6. LOVENOX [Concomitant]
  7. FOLIC ACID [Concomitant]
  8. HEPARIN [Concomitant]
  9. LEVOTHYROXINE SODIUM [Concomitant]
  10. LIDOCAIN PATCH [Concomitant]
  11. MAGNESIUM CITRATE [Concomitant]
  12. MAGNESIUM HYDROXIDE TAB [Concomitant]
  13. NITROFURANTOIN [Concomitant]
  14. OXYCODONE [Concomitant]
  15. ACETAMINOPHEN [Concomitant]
  16. SENNA [Concomitant]
  17. TAMSULOSIN HCL [Concomitant]
  18. TERAZOSIN HCL [Concomitant]
  19. TIZANIDINE [Concomitant]
  20. BACTRIM [Concomitant]
  21. ZOLPIDEM [Concomitant]

REACTIONS (1)
  - LEUKOPENIA [None]
